FAERS Safety Report 5725833-0 (Version None)
Quarter: 2008Q2

REPORT INFORMATION
  Report Type: 
  Country: None (occurrence: None)
  Receive Date: 20080429
  Receipt Date: 20080410
  Transmission Date: 20081010
  Serious: No
  Sender: FDA-Public Use
  Company Number: 002#2#2008-00235

PATIENT
  Age: 48 Year
  Sex: Male
  Weight: 83.4619 kg

DRUGS (7)
  1. NEUPRO [Suspect]
     Indication: BIPOLAR DISORDER
     Dosage: .5MG/24H,1 IN 1 D,TRANSDERMAL
     Route: 062
     Dates: start: 20080225, end: 20080309
  2. NEUPRO [Suspect]
     Indication: BIPOLAR DISORDER
     Dosage: .5MG/24H,1 IN 1 D,TRANSDERMAL
     Route: 062
     Dates: start: 20080310, end: 20080323
  3. DEPAKOTE [Concomitant]
  4. PRIMIDONE [Concomitant]
  5. COGENTIN [Concomitant]
  6. ZOCOR [Concomitant]
  7. RISPERIDONE [Concomitant]

REACTIONS (5)
  - DRUG INEFFECTIVE [None]
  - FEELING ABNORMAL [None]
  - HYPERSOMNIA [None]
  - IRRITABILITY [None]
  - WRONG TECHNIQUE IN DRUG USAGE PROCESS [None]
